FAERS Safety Report 9278300 (Version 1)
Quarter: 2013Q2

REPORT INFORMATION
  Report Type: Spontaneous
  Country: US (occurrence: US)
  Receive Date: 20130508
  Receipt Date: 20130508
  Transmission Date: 20140414
  Serious: Yes (Other)
  Sender: FDA-Public Use
  Company Number: US-BAYER-2013-055300

PATIENT
  Age: 12 Year
  Sex: Female
  Weight: 39 kg

DRUGS (1)
  1. MIDOL MENSTRUAL COMPLETE FORMULA [Suspect]
     Dosage: 5 DF, UNK
     Route: 048
     Dates: start: 20130429

REACTIONS (3)
  - Incorrect dose administered [None]
  - Rash macular [Recovering/Resolving]
  - Crying [None]
